FAERS Safety Report 7409434-4 (Version None)
Quarter: 2011Q2

REPORT INFORMATION
  Report Type: 
  Country: None (occurrence: None)
  Receive Date: 20110404
  Receipt Date: 20110323
  Transmission Date: 20111010
  Serious: Yes (Disabling)
  Sender: FDA-Public Use
  Company Number: 868653

PATIENT
  Age: 58 Year
  Sex: Female

DRUGS (1)
  1. GENTAMICIN SULFATE [Suspect]
     Indication: VERTIGO
     Dosage: 30 MG/MI., 0.5 ML, OTHER
     Route: 050

REACTIONS (5)
  - DIPLOPIA [None]
  - CONDITION AGGRAVATED [None]
  - VERTIGO [None]
  - GAZE PALSY [None]
  - VISUAL ACUITY REDUCED [None]
